FAERS Safety Report 20393108 (Version 3)
Quarter: 2022Q2

REPORT INFORMATION
  Report Type: Report from Study
  Country: TW (occurrence: TW)
  Receive Date: 20220128
  Receipt Date: 20220602
  Transmission Date: 20220721
  Serious: No
  Sender: FDA-Public Use
  Company Number: TW-KARYOPHARM-2022KPT000036

PATIENT
  Age: 36 Year
  Sex: Male

DRUGS (4)
  1. SELINEXOR [Suspect]
     Active Substance: SELINEXOR
     Indication: Plasma cell myeloma
     Dosage: 100 MG
     Route: 048
     Dates: start: 20211020
  2. SELINEXOR [Suspect]
     Active Substance: SELINEXOR
     Dosage: 80 MG
     Route: 048
     Dates: start: 202110, end: 20220311
  3. VELCADE [Concomitant]
     Active Substance: BORTEZOMIB
     Indication: Plasma cell myeloma
     Dosage: 2.2 MG
     Dates: start: 20211020
  4. DEXAMETHASONE [Concomitant]
     Active Substance: DEXAMETHASONE
     Indication: Plasma cell myeloma
     Dosage: 20 MG
     Dates: start: 20211020

REACTIONS (4)
  - Leukopenia [Recovered/Resolved]
  - Plasma cell myeloma [Unknown]
  - Hyponatraemia [Recovered/Resolved]
  - Thrombocytopenia [Not Recovered/Not Resolved]

NARRATIVE: CASE EVENT DATE: 20211022
